FAERS Safety Report 8003332-3 (Version None)
Quarter: 2011Q4

REPORT INFORMATION
  Report Type: 
  Country: None (occurrence: None)
  Receive Date: 20111222
  Receipt Date: 20111213
  Transmission Date: 20120403
  Serious: Yes (Other)
  Sender: FDA-Public Use
  Company Number: PHHY2011FR110079

PATIENT
  Sex: Male

DRUGS (1)
  1. AFINITOR [Suspect]
     Indication: RENAL CANCER
     Dosage: UNK UKN, UNK
     Dates: start: 20110201

REACTIONS (2)
  - ACTINIC KERATOSIS [None]
  - SQUAMOUS CELL CARCINOMA [None]
